FAERS Safety Report 5203538-2 (Version None)
Quarter: 2007Q1

REPORT INFORMATION
  Report Type: 
  Country: None (occurrence: None)
  Receive Date: 20070110
  Receipt Date: 20070103
  Transmission Date: 20070707
  Serious: Yes (Hospitalization)
  Sender: FDA-Public Use
  Company Number: PHBS2007CH00460

PATIENT
  Age: 77 Year
  Sex: Male

DRUGS (3)
  1. GLUCOPHAGE [Concomitant]
  2. AMARYL [Concomitant]
  3. VOLTAREN [Suspect]
     Route: 030
     Dates: start: 20060601, end: 20060625

REACTIONS (14)
  - ABDOMINAL PAIN [None]
  - BLOOD PRESSURE DECREASED [None]
  - DUODENAL ULCER [None]
  - FEELING COLD [None]
  - GASTRIC HAEMORRHAGE [None]
  - GASTRITIS EROSIVE [None]
  - GENERAL PHYSICAL HEALTH DETERIORATION [None]
  - HAEMOGLOBIN DECREASED [None]
  - HELICOBACTER INFECTION [None]
  - MELAENA [None]
  - NORMOCHROMIC NORMOCYTIC ANAEMIA [None]
  - PALLOR [None]
  - PERIPHERAL VASCULAR DISORDER [None]
  - TACHYCARDIA [None]
